FAERS Safety Report 8432408-1 (Version None)
Quarter: 2012Q2

REPORT INFORMATION
  Report Type: 
  Country: None (occurrence: None)
  Receive Date: 20120613
  Receipt Date: 20120611
  Transmission Date: 20120825
  Serious: Yes (Other)
  Sender: FDA-Public Use
  Company Number: US-PFIZER INC-2012140013

PATIENT
  Sex: Female

DRUGS (3)
  1. NORVASC [Suspect]
  2. CELEBREX [Suspect]
  3. DETROL LA [Suspect]

REACTIONS (1)
  - HIP FRACTURE [None]
